FAERS Safety Report 20360021 (Version 1)
Quarter: 2022Q1

REPORT INFORMATION
  Report Type: Report from Study
  Country: US (occurrence: US)
  Receive Date: 20220121
  Receipt Date: 20220121
  Transmission Date: 20220424
  Serious: Yes (Other)
  Sender: FDA-Public Use
  Company Number: US-BRISTOL-MYERS SQUIBB COMPANY-BMS-2022-006904

PATIENT
  Age: 89 Year
  Sex: Female
  Weight: 71.655 kg

DRUGS (2)
  1. ABATACEPT [Suspect]
     Active Substance: ABATACEPT
     Indication: Rheumatoid arthritis
     Dosage: 125 MILLIGRAM, QWK
     Route: 058
  2. COVID-19 VACCINE NOS [Suspect]
     Active Substance: COVID-19 VACCINE NOS
     Indication: COVID-19 immunisation
     Dosage: BOOSTER INJECTION
     Route: 065
     Dates: start: 20220112

REACTIONS (4)
  - Back disorder [Unknown]
  - Musculoskeletal discomfort [Unknown]
  - Fall [Unknown]
  - Product physical issue [Unknown]

NARRATIVE: CASE EVENT DATE: 20220113
